FAERS Safety Report 14801179 (Version 2)
Quarter: 2019Q1

REPORT INFORMATION
  Report Type: Report from Study
  Country: US (occurrence: US)
  Receive Date: 20180424
  Receipt Date: 20190305
  Transmission Date: 20190417
  Serious: Yes (Death, Hospitalization)
  Sender: FDA-Public Use
  Company Number: US-ASTRAZENECA-2018SE49711

PATIENT
  Age: 837 Month
  Sex: Male
  Weight: 96.4 kg

DRUGS (17)
  1. HYDROCHLOROTHIAZIDE. [Concomitant]
     Active Substance: HYDROCHLOROTHIAZIDE
  2. PANTOPRAZOLE [Concomitant]
     Active Substance: PANTOPRAZOLE
  3. ACETAMINOPHEN. [Concomitant]
     Active Substance: ACETAMINOPHEN
  4. TAGRISSO [Suspect]
     Active Substance: OSIMERTINIB
     Indication: NON-SMALL CELL LUNG CANCER
     Route: 048
     Dates: start: 20170221, end: 20180328
  5. ASCORBIC ACID. [Concomitant]
     Active Substance: ASCORBIC ACID
  6. FENTANYL. [Concomitant]
     Active Substance: FENTANYL
  7. LOSARTAN. [Concomitant]
     Active Substance: LOSARTAN
  8. PROCHLORPERAZINE. [Concomitant]
     Active Substance: PROCHLORPERAZINE
  9. DOCUSATE SODIUM. [Concomitant]
     Active Substance: DOCUSATE SODIUM
  10. LACTULOSE. [Concomitant]
     Active Substance: LACTULOSE
  11. POTASSIUM CHLORIDE. [Concomitant]
     Active Substance: POTASSIUM CHLORIDE
  12. OXYCODONE [Concomitant]
     Active Substance: OXYCODONE
  13. GABAPENTIN. [Concomitant]
     Active Substance: GABAPENTIN
  14. RIVAROXABAN [Concomitant]
     Active Substance: RIVAROXABAN
  15. AMIODARONE [Concomitant]
     Active Substance: AMIODARONE
  16. SIMVASTATIN. [Concomitant]
     Active Substance: SIMVASTATIN
  17. ONDANSETRON [Concomitant]
     Active Substance: ONDANSETRON

REACTIONS (3)
  - Atrial fibrillation [Recovered/Resolved]
  - Atrial flutter [Recovered/Resolved]
  - Disease progression [Fatal]

NARRATIVE: CASE EVENT DATE: 20180320
